FAERS Safety Report 10385600 (Version 1)
Quarter: 2014Q3

REPORT INFORMATION
  Report Type: Spontaneous
  Country: US (occurrence: US)
  Receive Date: 20140814
  Receipt Date: 20140814
  Transmission Date: 20150326
  Serious: Yes (Other)
  Sender: FDA-Public Use
  Company Number: US-ASTRAZENECA-2014SE57859

PATIENT
  Sex: Female

DRUGS (1)
  1. BRILINTA [Suspect]
     Active Substance: TICAGRELOR
     Route: 048

REACTIONS (3)
  - Acute myocardial infarction [Unknown]
  - Retroperitoneal haemorrhage [Unknown]
  - Wound secretion [Recovered/Resolved]

NARRATIVE: CASE EVENT DATE: 20140805
